FAERS Safety Report 8838546 (Version 2)
Quarter: 2012Q4

REPORT INFORMATION
  Report Type: 
  Country: US (occurrence: US)
  Receive Date: 20121012
  Receipt Date: 20121220
  Transmission Date: 20130627
  Serious: Yes (Death)
  Sender: FDA-Public Use
  Company Number: US-ELI_LILLY_AND_COMPANY-US201210003679

PATIENT
  Sex: Female

DRUGS (11)
  1. ALIMTA [Suspect]
     Indication: LUNG ADENOCARCINOMA STAGE IV
     Dosage: UNK
     Dates: start: 20110825
  2. CARBOPLATIN [Concomitant]
     Indication: LUNG ADENOCARCINOMA STAGE IV
  3. FOLIC ACID [Concomitant]
  4. B12-VITAMIN [Concomitant]
  5. LASIX [Concomitant]
  6. ADVAIR [Concomitant]
  7. SPIRIVA [Concomitant]
  8. FLONASE [Concomitant]
  9. DOXYCYCLINE [Concomitant]
  10. POTASSIUM [Concomitant]
  11. OXYGEN [Concomitant]
     Route: 045

REACTIONS (1)
  - Malignant neoplasm progression [Fatal]
